FAERS Safety Report 8222934-2 (Version None)
Quarter: 2012Q1

REPORT INFORMATION
  Report Type: 
  Country: None (occurrence: None)
  Receive Date: 20120320
  Receipt Date: 20120309
  Transmission Date: 20120608
  Serious: Yes (Other)
  Sender: FDA-Public Use
  Company Number: PHEH2012US005695

PATIENT
  Sex: Female

DRUGS (13)
  1. PRAMIPEXOLE DIHYDROCHLORIDE [Concomitant]
     Dosage: 1 MG, QID
     Dates: start: 20090313
  2. BENADRYL [Concomitant]
     Dosage: UNK UKN, UNK
     Dates: start: 20110816
  3. GILENYA [Suspect]
     Indication: MULTIPLE SCLEROSIS
     Dosage: 0.5 MG, QD
     Route: 048
     Dates: start: 20120228, end: 20120305
  4. GILENYA [Suspect]
     Dosage: 0.5 MG, QD
     Dates: start: 20120307
  5. ZYRTEC [Concomitant]
     Dosage: 10 MG, UNK
     Dates: start: 20110816
  6. LIPITOR [Concomitant]
     Dosage: 10 MG, UNK
     Route: 048
     Dates: start: 20110816
  7. FOSAMAX PLUS D [Concomitant]
     Dosage: 2800 MG, UNK
     Route: 048
     Dates: start: 20110816
  8. ACIPHEX [Concomitant]
     Dosage: 20 MG, UNK
     Route: 048
     Dates: start: 20071022
  9. CLONAZEPAM [Concomitant]
     Dosage: 1 MG, UNK
     Dates: start: 20110816
  10. PROVIGIL [Concomitant]
     Dosage: 20 MG, UNK
  11. ACIPHEX [Concomitant]
     Dosage: UNK UKN, UNK
     Dates: start: 20110816
  12. CLONAZEPAM [Concomitant]
     Dosage: 0.5 MG, UNK
     Route: 048
     Dates: start: 20111024
  13. ANAFLEX [Concomitant]
     Dosage: 4 MG, UNK
     Dates: start: 20110816

REACTIONS (1)
  - CENTRAL NERVOUS SYSTEM LESION [None]
